FAERS Safety Report 4504526-1 (Version None)
Quarter: 2004Q4

REPORT INFORMATION
  Report Type: 
  Country: None (occurrence: None)
  Receive Date: 20041116
  Receipt Date: 20041109
  Transmission Date: 20050328
  Serious: Yes (Other)
  Sender: FDA-Public Use
  Company Number: 2004S1000626

PATIENT
  Age: 76 Year
  Sex: Male
  Weight: 85.6845 kg

DRUGS (13)
  1. INOMAX [Suspect]
     Indication: RIGHT VENTRICULAR FAILURE
     Dosage: 20 PPM; COUNT; INH
     Dates: start: 20041008, end: 20041009
  2. ANCEF [Concomitant]
  3. ZAROXOLYN [Concomitant]
  4. PEPCID [Concomitant]
  5. SODIUM BICARBONATE [Concomitant]
  6. CALCIUM CHLORIDE [Concomitant]
  7. VITAMIN K [Concomitant]
  8. DILAUDID [Concomitant]
  9. EPINEPHRINE [Concomitant]
  10. LEVOPHED [Concomitant]
  11. AMIODARONE [Concomitant]
  12. LASIX [Concomitant]
  13. INSULIN [Concomitant]

REACTIONS (1)
  - MEDICATION ERROR [None]
